FAERS Safety Report 17113380 (Version 1)
Quarter: 2019Q4

REPORT INFORMATION
  Report Type: Spontaneous
  Country: GB (occurrence: GB)
  Receive Date: 20191205
  Receipt Date: 20191205
  Transmission Date: 20200122
  Serious: Yes (Other)
  Sender: FDA-Public Use
  Company Number: GB-TEVA-2019-GB-1146632

PATIENT
  Age: 52 Year
  Sex: Female
  Weight: 43 kg

DRUGS (9)
  1. ACETYLSALICYLIC ACID [Concomitant]
     Active Substance: ASPIRIN
  2. CARBOCISTEINE [Concomitant]
     Active Substance: CARBOCYSTEINE
  3. URSODEOXYCHOLIC ACID [Concomitant]
     Active Substance: URSODIOL
  4. AZITHROMYCIN ANHYDROUS. [Concomitant]
     Active Substance: AZITHROMYCIN ANHYDROUS
  5. TRELEGY ELLIPTA [Concomitant]
     Active Substance: FLUTICASONE FUROATE\UMECLIDINIUM BROMIDE\VILANTEROL TRIFENATATE
  6. FOLIC ACID. [Concomitant]
     Active Substance: FOLIC ACID
  7. SALBUTAMOL [Concomitant]
     Active Substance: ALBUTEROL
  8. VITAMIN D [Concomitant]
     Active Substance: VITAMIN D NOS
  9. LEVOFLOXACIN. [Suspect]
     Active Substance: LEVOFLOXACIN
     Dosage: IV NOT SURE OF DOSAGE
     Route: 042
     Dates: start: 20181216, end: 20181216

REACTIONS (2)
  - Urticaria [Recovered/Resolved]
  - Feeling hot [Recovered/Resolved]

NARRATIVE: CASE EVENT DATE: 20181216
